FAERS Safety Report 13733905 (Version 1)
Quarter: 2017Q3

REPORT INFORMATION
  Report Type: Spontaneous
  Country: None (occurrence: ES)
  Receive Date: 20170707
  Receipt Date: 20170707
  Transmission Date: 20171127
  Serious: Yes (Other)
  Sender: FDA-Public Use
  Company Number: ES-LABORATOIRE HRA PHARMA-2023102

PATIENT
  Sex: Female

DRUGS (1)
  1. ELLA [Suspect]
     Active Substance: ULIPRISTAL ACETATE
     Indication: POST COITAL CONTRACEPTION
     Route: 048
     Dates: start: 20170603, end: 20170603

REACTIONS (2)
  - Vision blurred [None]
  - Retinal detachment [None]

NARRATIVE: CASE EVENT DATE: 20170608
